FAERS Safety Report 5643488-0 (Version None)
Quarter: 2008Q1

REPORT INFORMATION
  Report Type: 
  Country: None (occurrence: None)
  Receive Date: 20080228
  Receipt Date: 20080215
  Transmission Date: 20080703
  Serious: Yes (Disabling, Other)
  Sender: FDA-Public Use
  Company Number: BR-PFIZER INC-2007108992

PATIENT
  Sex: Female
  Weight: 66 kg

DRUGS (2)
  1. CHANTIX [Suspect]
     Indication: SMOKING CESSATION THERAPY
     Route: 048
     Dates: start: 20071114, end: 20080208
  2. NEURONTIN [Suspect]
     Indication: TRIGEMINAL NEURALGIA
     Route: 048

REACTIONS (16)
  - ANXIETY [None]
  - DIARRHOEA [None]
  - DRUG DOSE OMISSION [None]
  - FLUID RETENTION [None]
  - GINGIVAL BLEEDING [None]
  - INCREASED APPETITE [None]
  - IRRITABILITY [None]
  - LOOSE TOOTH [None]
  - MEMORY IMPAIRMENT [None]
  - MOTOR DYSFUNCTION [None]
  - NAUSEA [None]
  - OROPHARYNGEAL BLISTERING [None]
  - PRURITUS GENERALISED [None]
  - SOMNOLENCE [None]
  - TRIGEMINAL NEURALGIA [None]
  - WEIGHT INCREASED [None]
